FAERS Safety Report 11444915 (Version 1)
Quarter: 2015Q3

REPORT INFORMATION
  Report Type: Spontaneous
  Country: US (occurrence: None)
  Receive Date: 20150901
  Receipt Date: 20150901
  Transmission Date: 20151125
  Serious: Yes (Hospitalization)
  Sender: FDA-Public Use
  Company Number: None

PATIENT
  Age: 77 Year
  Sex: Male
  Weight: 87.5 kg

DRUGS (1)
  1. ERBITUX [Suspect]
     Active Substance: CETUXIMAB
     Dates: end: 20110705

REACTIONS (11)
  - Productive cough [None]
  - Dehydration [None]
  - Malnutrition [None]
  - Hypotension [None]
  - Hypophagia [None]
  - Oral candidiasis [None]
  - Fatigue [None]
  - Nausea [None]
  - Autonomic nervous system imbalance [None]
  - Odynophagia [None]
  - Dermatitis acneiform [None]

NARRATIVE: CASE EVENT DATE: 20150820
